FAERS Safety Report 6291690-X (Version None)
Quarter: 2009Q3

REPORT INFORMATION
  Report Type: 
  Country: None (occurrence: None)
  Receive Date: 20090730
  Receipt Date: 20090727
  Transmission Date: 20100115
  Serious: Yes (Life-Threatening, Hospitalization)
  Sender: FDA-Public Use
  Company Number: IT-ASTRAZENECA-2009SE06002

PATIENT
  Age: 28559 Day
  Sex: Female

DRUGS (5)
  1. ARIMIDEX [Suspect]
     Indication: BREAST CANCER
     Route: 048
     Dates: start: 20060101, end: 20090608
  2. FUROSEMIDE [Concomitant]
     Route: 048
     Dates: start: 20090401, end: 20090626
  3. DELTACORTENE [Concomitant]
     Route: 048
     Dates: start: 20090417, end: 20090626
  4. ENOXAPARIN SODIUM [Concomitant]
     Route: 058
     Dates: start: 20090605, end: 20090609
  5. DIBASE [Concomitant]
     Route: 048
     Dates: start: 20090501, end: 20090621

REACTIONS (3)
  - HEPATOTOXICITY [None]
  - RENAL IMPAIRMENT [None]
  - THROMBOTIC MICROANGIOPATHY [None]
